FAERS Safety Report 15258213 (Version 3)
Quarter: 2018Q3

REPORT INFORMATION
  Report Type: Spontaneous
  Country: US (occurrence: US)
  Receive Date: 20180809
  Receipt Date: 20180813
  Transmission Date: 20181010
  Serious: Yes (Hospitalization)
  Sender: FDA-Public Use
  Company Number: US-UNITED THERAPEUTICS-UNT-2018-010215

PATIENT
  Age: 75 Year
  Sex: Male
  Weight: 76.64 kg

DRUGS (2)
  1. OPSUMIT [Concomitant]
     Active Substance: MACITENTAN
     Indication: PRODUCT USED FOR UNKNOWN INDICATION
     Dosage: UNK
     Route: 065
  2. REMODULIN [Suspect]
     Active Substance: TREPROSTINIL
     Indication: PULMONARY ARTERIAL HYPERTENSION
     Dosage: 0.030 ?G/KG, CONTINUING
     Route: 058
     Dates: start: 20180314

REACTIONS (7)
  - Feeling hot [Unknown]
  - Device issue [Unknown]
  - Flushing [Unknown]
  - Fatigue [Unknown]
  - Overdose [Recovered/Resolved]
  - Dyspnoea [Unknown]
  - Fall [Recovered/Resolved]

NARRATIVE: CASE EVENT DATE: 2018
